FAERS Safety Report 7968275-X (Version None)
Quarter: 2011Q4

REPORT INFORMATION
  Report Type: 
  Country: None (occurrence: None)
  Receive Date: 20111209
  Receipt Date: 20111206
  Transmission Date: 20120403
  Serious: Yes (Death)
  Sender: FDA-Public Use
  Company Number: PHHY2011MX57504

PATIENT
  Age: 72 Year
  Sex: Female

DRUGS (1)
  1. EXFORGE [Suspect]
     Indication: HYPERTENSION
     Dosage: 1 DF(VALSARTAN 160 MG /AMLODIPIN 10MG)

REACTIONS (5)
  - HYPERTENSION [None]
  - VOMITING [None]
  - MYOCARDIAL INFARCTION [None]
  - CARDIAC ARREST [None]
  - PAIN IN EXTREMITY [None]
